FAERS Safety Report 7287747-7 (Version None)
Quarter: 2011Q1

REPORT INFORMATION
  Report Type: 
  Country: None (occurrence: None)
  Receive Date: 20110208
  Receipt Date: 20110208
  Transmission Date: 20110831
  Serious: No
  Sender: FDA-Public Use
  Company Number: None

PATIENT
  Age: 42 Year
  Sex: Female
  Weight: 63.5036 kg

DRUGS (1)
  1. ARMOUR THYROID 60 MG WALMART PHARMACY [Suspect]
     Indication: HYPOTHYROIDISM
     Dosage: 60 MG 1 DAILY PO
     Route: 048
     Dates: start: 20101010

REACTIONS (3)
  - TINNITUS [None]
  - DRUG INEFFECTIVE [None]
  - PRODUCT FORMULATION ISSUE [None]
